FAERS Safety Report 7997998-1 (Version None)
Quarter: 2011Q4

REPORT INFORMATION
  Report Type: 
  Country: None (occurrence: None)
  Receive Date: 20111221
  Receipt Date: 20110503
  Transmission Date: 20120403
  Serious: No
  Sender: FDA-Public Use
  Company Number: US-GLAXOSMITHKLINE-A0864043A

PATIENT
  Age: 59 Year
  Sex: Female

DRUGS (3)
  1. ZYRTEC [Concomitant]
  2. VITAMIN TAB [Concomitant]
  3. LOVAZA [Suspect]
     Indication: BLOOD TRIGLYCERIDES INCREASED
     Dosage: 1G FOUR TIMES PER DAY
     Route: 048
     Dates: start: 20070701

REACTIONS (7)
  - DECREASED APPETITE [None]
  - FOOD POISONING [None]
  - THERAPEUTIC RESPONSE UNEXPECTED [None]
  - VOMITING [None]
  - WEIGHT DECREASED [None]
  - DIARRHOEA [None]
  - NAUSEA [None]
